FAERS Safety Report 7397690 (Version 11)
Quarter: 2015Q1

REPORT INFORMATION
  Report Type: Report from Study
  Country: JP (occurrence: JP)
  Receive Date: 20100524
  Receipt Date: 20150123
  Transmission Date: 20150721
  Serious: Yes (Hospitalization, Other)
  Sender: FDA-Public Use
  Company Number: PHHO2010JP07419

PATIENT
  Age: 72 Year
  Sex: Male
  Weight: 56 kg

DRUGS (15)
  1. ALISKIREN [Suspect]
     Active Substance: ALISKIREN
     Dosage: UNK
     Route: 048
     Dates: start: 20100323, end: 20100513
  2. COMPARATOR ENALAPRIL [Suspect]
     Active Substance: ENALAPRIL
     Indication: CARDIAC FAILURE
     Dosage: 10 MG,
     Route: 048
     Dates: start: 20100210, end: 20100215
  3. BAYASPIRIN [Concomitant]
     Active Substance: ASPIRIN
     Indication: CEREBRAL INFARCTION
     Dosage: UNK
     Route: 048
     Dates: start: 20061217, end: 20100506
  4. ALOSITOL [Concomitant]
     Active Substance: ALLOPURINOL
     Indication: HYPERURICAEMIA
  5. WARFARIN POTASSIUM [Concomitant]
     Active Substance: WARFARIN POTASSIUM
     Indication: ATRIAL FIBRILLATION
  6. ALISKIREN [Suspect]
     Active Substance: ALISKIREN
     Dosage: UNK
     Dates: start: 20100514, end: 20100607
  7. ALISKIREN [Suspect]
     Active Substance: ALISKIREN
     Dosage: UNK
     Route: 048
     Dates: start: 20100608
  8. GLORIAMIN [Concomitant]
  9. COMPARATOR ENALAPRIL [Suspect]
     Active Substance: ENALAPRIL
     Dosage: UNK
     Route: 048
     Dates: start: 20100608
  10. COMPARATOR ENALAPRIL [Suspect]
     Active Substance: ENALAPRIL
     Dosage: 20 MG
     Route: 048
     Dates: start: 20100216, end: 20100322
  11. AMARYL [Concomitant]
     Active Substance: GLIMEPIRIDE
     Indication: DIABETES MELLITUS
  12. ALISKIREN [Suspect]
     Active Substance: ALISKIREN
     Indication: CARDIAC FAILURE
     Dosage: 150 MG
     Route: 048
     Dates: start: 20100302, end: 20100322
  13. ARTIST [Concomitant]
     Active Substance: CARVEDILOL
     Indication: CARDIAC FAILURE CHRONIC
  14. ANCARON [Concomitant]
     Active Substance: AMIODARONE HYDROCHLORIDE
     Indication: VENTRICULAR EXTRASYSTOLES
  15. RENIVACE [Concomitant]
     Active Substance: ENALAPRIL

REACTIONS (19)
  - Cardiac failure chronic [Recovering/Resolving]
  - Pleural effusion [Recovering/Resolving]
  - Sinus node dysfunction [Recovering/Resolving]
  - Face oedema [Recovered/Resolved]
  - Nausea [Recovering/Resolving]
  - Oedema [Recovering/Resolving]
  - Oesophageal ulcer [Recovered/Resolved]
  - Weight increased [Recovered/Resolved]
  - Atrioventricular block second degree [Not Recovered/Not Resolved]
  - Chronic kidney disease [Unknown]
  - Pericarditis [Recovering/Resolving]
  - Gastric neoplasm [Not Recovered/Not Resolved]
  - Oedema peripheral [Recovered/Resolved]
  - Malaise [Recovering/Resolving]
  - Decreased appetite [Recovering/Resolving]
  - Wound complication [Unknown]
  - Vomiting [Recovering/Resolving]
  - Atrioventricular block [Unknown]
  - Bradycardia [Recovering/Resolving]

NARRATIVE: CASE EVENT DATE: 20100419
